FAERS Safety Report 11966279 (Version 1)
Quarter: 2016Q1

REPORT INFORMATION
  Report Type: Spontaneous
  Country: UG (occurrence: UG)
  Receive Date: 20160127
  Receipt Date: 20160127
  Transmission Date: 20160526
  Serious: Yes (Hospitalization, Other)
  Sender: FDA-Public Use
  Company Number: UG-ROXANE LABORATORIES, INC.-2016-RO-00091RO

PATIENT
  Age: 15 Year
  Sex: Female
  Weight: 42 kg

DRUGS (3)
  1. ZIDOVUDINE. [Suspect]
     Active Substance: ZIDOVUDINE
     Indication: HIV INFECTION
     Route: 065
  2. NEVIRAPINE. [Suspect]
     Active Substance: NEVIRAPINE
     Indication: HIV INFECTION
     Route: 065
  3. LAMIVUDINE. [Suspect]
     Active Substance: LAMIVUDINE
     Indication: HIV INFECTION
     Route: 065

REACTIONS (5)
  - Pericardial effusion [Recovered/Resolved]
  - Congestive cardiomyopathy [Recovered/Resolved]
  - Left ventricular dysfunction [Recovered/Resolved]
  - Pneumonia [Unknown]
  - Intracardiac thrombus [Recovered/Resolved]
